FAERS Safety Report 23401132 (Version 1)
Quarter: 2024Q1

REPORT INFORMATION
  Report Type: Spontaneous
  Country: US (occurrence: US)
  Receive Date: 20240115
  Receipt Date: 20240115
  Transmission Date: 20240410
  Serious: Yes (Hospitalization)
  Sender: FDA-Public Use
  Company Number: US-002147023-NVSC2024US006304

PATIENT
  Age: 40 Year
  Sex: Female
  Weight: 122.45 kg

DRUGS (4)
  1. ENTRESTO [Suspect]
     Active Substance: SACUBITRIL\VALSARTAN
     Indication: Product used for unknown indication
     Route: 065
  2. SPIRONOLACTONE [Suspect]
     Active Substance: SPIRONOLACTONE
     Indication: Product used for unknown indication
     Dosage: UNK
     Route: 065
  3. PEPCID [Suspect]
     Active Substance: FAMOTIDINE
     Indication: Product used for unknown indication
     Route: 065
  4. OXYCODONE [Suspect]
     Active Substance: OXYCODONE
     Indication: Pain
     Dosage: UNK
     Route: 065

REACTIONS (7)
  - Urinary retention [Unknown]
  - Pain [Unknown]
  - Constipation [Unknown]
  - Decreased appetite [Unknown]
  - Wheezing [Unknown]
  - Nausea [Unknown]
  - Hypotension [Unknown]
